FAERS Safety Report 12856197 (Version 6)
Quarter: 2017Q2

REPORT INFORMATION
  Report Type: Report from Study
  Country: US (occurrence: US)
  Receive Date: 20161018
  Receipt Date: 20170530
  Transmission Date: 20170830
  Serious: Yes (Hospitalization, Other)
  Sender: FDA-Public Use
  Company Number: US-GILEAD-2016-0237386

PATIENT
  Age: 18 Year
  Sex: Male
  Weight: 60 kg

DRUGS (6)
  1. AMBRISENTAN [Suspect]
     Active Substance: AMBRISENTAN
     Dosage: 5 MG, QD
     Route: 065
  2. UPTRAVI [Concomitant]
     Active Substance: SELEXIPAG
  3. AMBRISENTAN [Suspect]
     Active Substance: AMBRISENTAN
     Indication: PRODUCT USED FOR UNKNOWN INDICATION
     Dosage: 10 MG, QD
     Route: 065
     Dates: start: 20160517
  4. SILDENAFIL CITRATE. [Concomitant]
     Active Substance: SILDENAFIL CITRATE
  5. AMBRISENTAN [Suspect]
     Active Substance: AMBRISENTAN
     Dosage: 10 MG, QD
     Route: 065
  6. REMODULIN [Suspect]
     Active Substance: TREPROSTINIL
     Indication: PRODUCT USED FOR UNKNOWN INDICATION
     Route: 065

REACTIONS (13)
  - Infusion site pain [Not Recovered/Not Resolved]
  - Scab [Unknown]
  - Infusion site erythema [Unknown]
  - Skin disorder [Recovered/Resolved]
  - Dermatitis contact [Unknown]
  - Infusion site vesicles [Not Recovered/Not Resolved]
  - Infusion site infection [Recovered/Resolved]
  - Erythema [Recovered/Resolved]
  - Nasal congestion [Not Recovered/Not Resolved]
  - Infusion site discharge [Unknown]
  - Purulence [Not Recovered/Not Resolved]
  - Pneumonia [Unknown]
  - Infusion site pain [Unknown]

NARRATIVE: CASE EVENT DATE: 20170119
